FAERS Safety Report 14740479 (Version 1)
Quarter: 2018Q2

REPORT INFORMATION
  Report Type: Spontaneous
  Country: FR (occurrence: FR)
  Receive Date: 20180410
  Receipt Date: 20180410
  Transmission Date: 20180711
  Serious: Yes (Hospitalization, Other)
  Sender: FDA-Public Use
  Company Number: FR-MYLANLABS-2018M1023088

PATIENT
  Age: 49 Year
  Sex: Female

DRUGS (2)
  1. NIVOLUMAB [Suspect]
     Active Substance: NIVOLUMAB
     Indication: LUNG NEOPLASM MALIGNANT
     Dosage: 180 MG, UNK
     Route: 042
  2. FONDAPARINUX [Suspect]
     Active Substance: FONDAPARINUX
     Indication: PRODUCT USED FOR UNKNOWN INDICATION
     Dosage: 7.5 MG, QD
     Route: 065

REACTIONS (8)
  - General physical health deterioration [Not Recovered/Not Resolved]
  - Arthralgia [Recovering/Resolving]
  - Pyrexia [Recovering/Resolving]
  - Psychomotor retardation [Not Recovered/Not Resolved]
  - Renal pain [Recovering/Resolving]
  - Adverse event [Recovering/Resolving]
  - Confusional state [Not Recovered/Not Resolved]
  - Pain in extremity [Recovering/Resolving]

NARRATIVE: CASE EVENT DATE: 20171024
